FAERS Safety Report 6060407-6 (Version None)
Quarter: 2009Q1

REPORT INFORMATION
  Report Type: 
  Country: None (occurrence: None)
  Receive Date: 20090129
  Receipt Date: 20090129
  Transmission Date: 20090719
  Serious: Yes (Other)
  Sender: FDA-Public Use
  Company Number: None

PATIENT
  Sex: Female
  Weight: 60.91 kg

DRUGS (4)
  1. NAPROSYN [Suspect]
     Dosage: 500 MG TABLET 500 MG BID ORAL
     Route: 048
     Dates: start: 20081224, end: 20090128
  2. CALCIUM + D (500 ELEM.CA) (CALCIUM CARBONATE 1250 MG (500MG ELEM CA/ V [Concomitant]
  3. MULTIVITAMIN THERAPEUTIC (THERAPEUTIC MULTIVITAMINS) [Concomitant]
  4. OMEGA 3 FATTY ACIDS [Concomitant]

REACTIONS (1)
  - GASTROINTESTINAL DISORDER [None]
